FAERS Safety Report 21295485 (Version 1)
Quarter: 2022Q3

REPORT INFORMATION
  Report Type: Spontaneous
  Country: US (occurrence: None)
  Receive Date: 20220905
  Receipt Date: 20220905
  Transmission Date: 20221027
  Serious: No
  Sender: FDA-Public Use
  Company Number: 2022A296415

PATIENT
  Age: 799 Month
  Sex: Female
  Weight: 108.9 kg

DRUGS (1)
  1. BYDUREON BCISE [Suspect]
     Active Substance: EXENATIDE
     Indication: Glucose tolerance impaired
     Route: 058

REACTIONS (4)
  - Blood glucose increased [Unknown]
  - Drug dose omission by device [Not Recovered/Not Resolved]
  - Off label use [Not Recovered/Not Resolved]
  - Device leakage [Unknown]

NARRATIVE: CASE EVENT DATE: 20220801
